FAERS Safety Report 20795288 (Version 2)
Quarter: 2022Q2

REPORT INFORMATION
  Report Type: Spontaneous
  Country: US (occurrence: US)
  Receive Date: 20220506
  Receipt Date: 20220608
  Transmission Date: 20220721
  Serious: No
  Sender: FDA-Public Use
  Company Number: US-PFIZER INC-2019144584

PATIENT
  Age: 70 Year
  Sex: Female
  Weight: 87.54 kg

DRUGS (2)
  1. RAPAMUNE [Suspect]
     Active Substance: SIROLIMUS
     Indication: Liver transplant
     Dosage: 1 MG TAKE 5 TABLETS (5 MG DAILY)
     Route: 048
  2. RAPAMUNE [Suspect]
     Active Substance: SIROLIMUS
     Dosage: 4 MG, DAILY (1MG TABLET-4 TABLETS TAKEN BY MOUTH DAILY)
     Route: 048
     Dates: start: 201901

REACTIONS (2)
  - Off label use [Unknown]
  - Drug level increased [Unknown]

NARRATIVE: CASE EVENT DATE: 20220323
